FAERS Safety Report 10098487 (Version 1)
Quarter: 2014Q2

REPORT INFORMATION
  Report Type: Spontaneous
  Country: US (occurrence: None)
  Receive Date: 20140422
  Receipt Date: 20140422
  Transmission Date: 20141212
  Serious: Yes (Hospitalization)
  Sender: FDA-Public Use
  Company Number: None

PATIENT
  Age: 75 Year
  Sex: Female

DRUGS (2)
  1. RIVAROXABAN [Suspect]
     Indication: ATRIAL FIBRILLATION
     Route: 048
  2. ASPIRIN 325 MG [Suspect]
     Route: 048

REACTIONS (4)
  - Upper gastrointestinal haemorrhage [None]
  - Gastric ulcer [None]
  - Haematemesis [None]
  - Faeces discoloured [None]
